FAERS Safety Report 24092397 (Version 1)
Quarter: 2024Q3

REPORT INFORMATION
  Report Type: Spontaneous
  Country: US (occurrence: US)
  Receive Date: 20240715
  Receipt Date: 20240715
  Transmission Date: 20241017
  Serious: No
  Sender: PERRIGO
  Company Number: US-PERRIGO-24US003276

PATIENT
  Age: 30 Year
  Sex: Male
  Weight: 92.063 kg

DRUGS (1)
  1. MINOXIDIL [Suspect]
     Active Substance: MINOXIDIL
     Indication: Alopecia
     Dosage: 1 ML, BID
     Route: 061
     Dates: start: 202312, end: 20240312

REACTIONS (1)
  - Application site papules [Recovering/Resolving]

NARRATIVE: CASE EVENT DATE: 20231201
